FAERS Safety Report 7148050-9 (Version None)
Quarter: 2010Q4

REPORT INFORMATION
  Report Type: 
  Country: None (occurrence: None)
  Receive Date: 20101207
  Receipt Date: 20101207
  Transmission Date: 20110411
  Serious: Yes (Death, Hospitalization)
  Sender: FDA-Public Use
  Company Number: None

PATIENT
  Age: 71 Year
  Sex: Female
  Weight: 54.6 kg

DRUGS (13)
  1. CAPECITABINE [Suspect]
     Indication: COLORECTAL CANCER METASTATIC
     Dosage: 2500 MG BIC X 7 DAYS PO
     Route: 048
     Dates: start: 20090414
  2. CETUXIMAB [Suspect]
     Indication: COLORECTAL CANCER METASTATIC
     Dosage: 500 MG/M2 BIWEEKLY IV
     Route: 042
     Dates: start: 20090407
  3. OXALIPLATIN [Suspect]
     Indication: COLORECTAL CANCER METASTATIC
     Dosage: 85 MG/M2 BIWEEKLY IV
     Route: 042
     Dates: start: 20090407
  4. METFORMIN HCL [Concomitant]
  5. CADUET [Concomitant]
  6. DIOVAN [Concomitant]
  7. SYNTHROID [Concomitant]
  8. FLUOXETINE [Concomitant]
  9. ASPIRIN [Concomitant]
  10. ZOFRAN [Concomitant]
  11. VANCOMYCIN [Concomitant]
  12. LOMOTIL [Concomitant]
  13. MAGIC MOUTHWASH [Concomitant]

REACTIONS (10)
  - CANDIDIASIS [None]
  - DECUBITUS ULCER [None]
  - DEHYDRATION [None]
  - DIARRHOEA [None]
  - DISCOMFORT [None]
  - INFECTION [None]
  - NEUTROPENIA [None]
  - RENAL FAILURE [None]
  - SEPSIS [None]
  - SIMPLEX VIRUS TEST POSITIVE [None]
